FAERS Safety Report 5956051-9 (Version None)
Quarter: 2008Q4

REPORT INFORMATION
  Report Type: 
  Country: None (occurrence: None)
  Receive Date: 20081118
  Receipt Date: 20081111
  Transmission Date: 20090506
  Serious: Yes (Other)
  Sender: FDA-Public Use
  Company Number: DE-SP-2008-03538

PATIENT
  Age: 80 Year
  Sex: Male
  Weight: 75 kg

DRUGS (1)
  1. IMMUCYST [Suspect]
     Indication: BLADDER CANCER
     Dosage: NOT REPORTED
     Route: 043

REACTIONS (3)
  - BOVINE TUBERCULOSIS [None]
  - DISSEMINATED TUBERCULOSIS [None]
  - PYREXIA [None]
